FAERS Safety Report 7924739-6 (Version None)
Quarter: 2011Q4

REPORT INFORMATION
  Report Type: 
  Country: None (occurrence: None)
  Receive Date: 20111118
  Receipt Date: 20110325
  Transmission Date: 20120403
  Serious: No
  Sender: FDA-Public Use
  Company Number: US-AMGEN-USASP2011016171

PATIENT
  Age: 58 Year
  Sex: Female

DRUGS (3)
  1. LORTAB [Concomitant]
  2. ENBREL [Suspect]
     Indication: RHEUMATOID ARTHRITIS
     Dosage: 50 MG, QWK
     Dates: start: 20110323
  3. METHOTREXATE [Concomitant]
     Dosage: 15 MG, QWK
     Dates: start: 20100101

REACTIONS (6)
  - INJECTION SITE HAEMATOMA [None]
  - WEIGHT DECREASED [None]
  - INJECTION SITE PAIN [None]
  - SINUSITIS [None]
  - INJECTION SITE REACTION [None]
  - MENTAL IMPAIRMENT [None]
